FAERS Safety Report 12342469 (Version 3)
Quarter: 2016Q2

REPORT INFORMATION
  Report Type: Report from Study
  Country: US (occurrence: US)
  Receive Date: 20160506
  Receipt Date: 20160614
  Transmission Date: 20160815
  Serious: Yes (Hospitalization)
  Sender: FDA-Public Use
  Company Number: US-ABBVIE-16K-163-1619031-00

PATIENT
  Age: 71 Year
  Sex: Male
  Weight: 64.47 kg

DRUGS (3)
  1. HUMIRA [Suspect]
     Active Substance: ADALIMUMAB
     Route: 058
  2. HUMIRA [Suspect]
     Active Substance: ADALIMUMAB
     Indication: COLITIS ULCERATIVE
     Route: 058
  3. HUMIRA [Suspect]
     Active Substance: ADALIMUMAB
     Indication: CROHN^S DISEASE
     Route: 058
     Dates: start: 20160401, end: 20160401

REACTIONS (8)
  - Colitis ulcerative [Recovering/Resolving]
  - Large intestinal obstruction [Unknown]
  - Endocarditis [Unknown]
  - Gastrointestinal toxicity [Recovered/Resolved with Sequelae]
  - Liver injury [Unknown]
  - Loss of consciousness [Recovered/Resolved]
  - Overdose [Recovered/Resolved]
  - Haematotoxicity [Recovered/Resolved with Sequelae]

NARRATIVE: CASE EVENT DATE: 201604
